FAERS Safety Report 5643291-1 (Version None)
Quarter: 2008Q1

REPORT INFORMATION
  Report Type: 
  Country: None (occurrence: None)
  Receive Date: 20080228
  Receipt Date: 20080220
  Transmission Date: 20080703
  Serious: Yes (Other)
  Sender: FDA-Public Use
  Company Number: PT-JNJFOC-20080204702

PATIENT
  Age: 8 Decade
  Sex: Female

DRUGS (2)
  1. REMINYL [Suspect]
     Indication: DEMENTIA ALZHEIMER'S TYPE
     Route: 048
  2. MEMANTINE HCL [Concomitant]

REACTIONS (2)
  - DRUG PRESCRIBING ERROR [None]
  - SOMNOLENCE [None]
